FAERS Safety Report 19886369 (Version 2)
Quarter: 2021Q4

REPORT INFORMATION
  Report Type: Spontaneous
  Country: JP (occurrence: JP)
  Receive Date: 20210927
  Receipt Date: 20211013
  Transmission Date: 20220303
  Serious: Yes (Hospitalization, Other)
  Sender: FDA-Public Use
  Company Number: JP-MLMSERVICE-20210915-3108317-1

PATIENT
  Age: 82 Year
  Sex: Female

DRUGS (1)
  1. RHEUMATREX [Suspect]
     Active Substance: METHOTREXATE SODIUM
     Indication: Polymyalgia rheumatica

REACTIONS (5)
  - Agranulocytosis [Recovering/Resolving]
  - Aphthous ulcer [Recovering/Resolving]
  - Herpes simplex [Recovering/Resolving]
  - Mucosal inflammation [Recovering/Resolving]
  - Herpes zoster [Recovering/Resolving]
